FAERS Safety Report 10161614 (Version 1)
Quarter: 2014Q2

REPORT INFORMATION
  Report Type: Spontaneous
  Country: IT (occurrence: IT)
  Receive Date: 20140509
  Receipt Date: 20140509
  Transmission Date: 20141212
  Serious: Yes (Hospitalization)
  Sender: FDA-Public Use
  Company Number: IT-AMGEN-ITASP2014033697

PATIENT
  Age: 59 Year
  Sex: Male

DRUGS (2)
  1. ENBREL [Suspect]
     Indication: PSORIASIS
     Dosage: 100 MG, WEEKLY
     Route: 058
     Dates: start: 20140408, end: 20140426
  2. ZEFFIX [Suspect]
     Indication: HEPATITIS C
     Dosage: 100 MG, 1X/DAY
     Route: 048
     Dates: start: 20140211

REACTIONS (1)
  - Urticaria [Recovering/Resolving]
